FAERS Safety Report 19670050 (Version 1)
Quarter: 2021Q3

REPORT INFORMATION
  Report Type: Spontaneous
  Country: BR (occurrence: BR)
  Receive Date: 20210806
  Receipt Date: 20210806
  Transmission Date: 20211014
  Serious: Yes (Hospitalization)
  Sender: FDA-Public Use
  Company Number: BR-ASTRAZENECA-2021A659001

PATIENT
  Sex: Female

DRUGS (1)
  1. KOMBIGLYZE XR [Suspect]
     Active Substance: METFORMIN HYDROCHLORIDE\SAXAGLIPTIN HYDROCHLORIDE
     Dosage: 5/1000MG TWICE A DAY ONE TABLET IN THE LUNCH AND ONE TABLET AT DINNER
     Route: 048

REACTIONS (2)
  - Oropharyngeal discomfort [Unknown]
  - Medication error [Not Recovered/Not Resolved]
